FAERS Safety Report 16307139 (Version 1)
Quarter: 2019Q2

REPORT INFORMATION
  Report Type: Spontaneous
  Country: AU (occurrence: AU)
  Receive Date: 20190514
  Receipt Date: 20190514
  Transmission Date: 20190711
  Serious: Yes (Other)
  Sender: FDA-Public Use
  Company Number: AU-009507513-1905AUS004191

PATIENT
  Age: 15 Year
  Sex: Female

DRUGS (1)
  1. IMPLANON [Suspect]
     Active Substance: ETONOGESTREL
     Indication: DYSMENORRHOEA
     Dosage: UNK
     Route: 059
     Dates: start: 2017

REACTIONS (4)
  - Product use in unapproved indication [Unknown]
  - Staphyloma [Unknown]
  - Product prescribing error [Unknown]
  - Papilloedema [Unknown]

NARRATIVE: CASE EVENT DATE: 2017
